FAERS Safety Report 8974780 (Version 1)
Quarter: 2012Q4

REPORT INFORMATION
  Report Type: Spontaneous
  Country: US (occurrence: None)
  Receive Date: 20121211
  Receipt Date: 20121211
  Transmission Date: 20130627
  Serious: Yes (Hospitalization)
  Sender: FDA-Public Use
  Company Number: 12AE013

PATIENT
  Age: 76 Year
  Sex: Female
  Weight: 63.5 kg

DRUGS (1)
  1. SENNOSIDES [Suspect]
     Indication: CONSTIPATION
     Dosage: 2 tabs, twice by mouth
     Route: 048
     Dates: start: 20121129

REACTIONS (2)
  - Diverticulitis [None]
  - Infection parasitic [None]
